APPROVED DRUG PRODUCT: CINACALCET HYDROCHLORIDE
Active Ingredient: CINACALCET HYDROCHLORIDE
Strength: EQ 90MG BASE
Dosage Form/Route: TABLET;ORAL
Application: A209226 | Product #003 | TE Code: AB
Applicant: STRIDES PHARMA GLOBAL PTE LTD
Approved: Apr 30, 2018 | RLD: No | RS: Yes | Type: RX